FAERS Safety Report 9607444 (Version 1)
Quarter: 2013Q4

REPORT INFORMATION
  Report Type: Spontaneous
  Country: US (occurrence: None)
  Receive Date: 20131007
  Receipt Date: 20131007
  Transmission Date: 20140711
  Serious: Yes (Disabling)
  Sender: FDA-Public Use
  Company Number: None

PATIENT
  Age: 62 Year
  Sex: 0
  Weight: 87.09 kg

DRUGS (1)
  1. CIPROFLOXACIN [Suspect]
     Indication: PROSTATITIS
     Dosage: TAKEN BY MOUTH
     Dates: start: 20130209, end: 20130223

REACTIONS (6)
  - Back pain [None]
  - Arthralgia [None]
  - Abasia [None]
  - Spinal column stenosis [None]
  - Intervertebral disc protrusion [None]
  - Feeling abnormal [None]
